FAERS Safety Report 5524039-8 (Version None)
Quarter: 2007Q4

REPORT INFORMATION
  Report Type: 
  Country: None (occurrence: None)
  Receive Date: 20071121
  Receipt Date: 20071119
  Transmission Date: 20080405
  Serious: Yes (Hospitalization)
  Sender: FDA-Public Use
  Company Number: AU-BOEHRINGER INGELHEIM PHARMACEUTICALS, INC.-2007-BP-24778AU

PATIENT
  Age: 85 Year
  Sex: Male

DRUGS (3)
  1. SPIRIVA [Suspect]
     Dates: start: 20071101
  2. VENTOLIN [Concomitant]
  3. ATROVENT [Concomitant]

REACTIONS (2)
  - LOSS OF CONSCIOUSNESS [None]
  - OVERDOSE [None]
